FAERS Safety Report 13899407 (Version 2)
Quarter: 2017Q4

REPORT INFORMATION
  Report Type: Spontaneous
  Country: US (occurrence: US)
  Receive Date: 20170824
  Receipt Date: 20171016
  Transmission Date: 20180320
  Serious: Yes (Hospitalization, Other)
  Sender: FDA-Public Use
  Company Number: US-PFIZER INC-2017356382

PATIENT
  Age: 20 Year
  Sex: Female
  Weight: 48 kg

DRUGS (29)
  1. ARA-C [Suspect]
     Active Substance: CYTARABINE
     Indication: RECURRENT CANCER
     Dosage: 50 MG, 2X/WEEK
     Route: 037
     Dates: start: 20160708
  2. SOLU-MEDROL [Suspect]
     Active Substance: METHYLPREDNISOLONE SODIUM SUCCINATE
     Dosage: 60 MG, UNK
     Dates: start: 20160502
  3. PREDNISONE. [Suspect]
     Active Substance: PREDNISONE
     Dosage: 50 MG, UNK
     Dates: start: 20160503
  4. BLINCYTO [Suspect]
     Active Substance: BLINATUMOMAB
     Dosage: UNK
     Dates: start: 20170706
  5. ZITHROMAX [Concomitant]
     Active Substance: AZITHROMYCIN DIHYDRATE
     Dosage: UNK
  6. BLINCYTO [Suspect]
     Active Substance: BLINATUMOMAB
     Indication: ACUTE LYMPHOCYTIC LEUKAEMIA RECURRENT
     Dosage: UNK
     Dates: start: 20170410, end: 20170413
  7. DECADRON [Suspect]
     Active Substance: DEXAMETHASONE
     Indication: METASTASES TO CENTRAL NERVOUS SYSTEM
  8. HYDROCORTISONE. [Suspect]
     Active Substance: HYDROCORTISONE
     Indication: RECURRENT CANCER
     Dosage: 50 MG, UNK
     Route: 037
     Dates: start: 20160708
  9. HYDROCORTISONE. [Suspect]
     Active Substance: HYDROCORTISONE
     Indication: METASTASES TO CENTRAL NERVOUS SYSTEM
     Dosage: 100 MG, UNK
     Route: 037
  10. MITOXANTRONE HCL [Suspect]
     Active Substance: MITOXANTRONE HYDROCHLORIDE
     Indication: B PRECURSOR TYPE ACUTE LEUKAEMIA
     Dosage: UNK (1 IN 1 CYCLICAL)
  11. CYCLOPHOSPHAMIDE. [Suspect]
     Active Substance: CYCLOPHOSPHAMIDE
     Indication: BONE MARROW CONDITIONING REGIMEN
     Dosage: UNK, UNK (CONDITIONING RE-)
     Dates: start: 20151016
  12. DOXORUBICIN HCL [Suspect]
     Active Substance: DOXORUBICIN HYDROCHLORIDE
     Indication: B PRECURSOR TYPE ACUTE LEUKAEMIA
     Dosage: UNK(INTENSIFICATION 2)
  13. VINCRISTINE SULFATE. [Suspect]
     Active Substance: VINCRISTINE SULFATE
     Indication: B PRECURSOR TYPE ACUTE LEUKAEMIA
     Dosage: UNK, CYCLIC(EVERY THREE WEEKS)
     Dates: end: 20141205
  14. SOLU-CORTEF [Suspect]
     Active Substance: HYDROCORTISONE SODIUM SUCCINATE
     Dosage: UNK(1 IN 2 WK)
     Route: 037
     Dates: end: 20170622
  15. PROMETHAZINE [Concomitant]
     Active Substance: PROMETHAZINE\PROMETHAZINE HYDROCHLORIDE
     Dosage: UNK
  16. DILANTIN [Suspect]
     Active Substance: PHENYTOIN
     Dosage: UNK
  17. METHOTREXATE SODIUM. [Suspect]
     Active Substance: METHOTREXATE SODIUM
     Indication: BONE MARROW CONDITIONING REGIMEN
     Dosage: UNK UNK, WEEKLY (1 IN 1 WK)
     Route: 030
     Dates: end: 20141205
  18. DEXAMETHASONE. [Suspect]
     Active Substance: DEXAMETHASONE
     Indication: LYMPHOCYTIC LEUKAEMIA
     Dosage: 4 MG, 2X/DAY (4 MG ,2 IN 1 D)
     Dates: start: 20160504
  19. BLINCYTO [Suspect]
     Active Substance: BLINATUMOMAB
     Dosage: UNK
     Dates: start: 20170524, end: 20170621
  20. DECADRON [Suspect]
     Active Substance: DEXAMETHASONE
     Indication: RECURRENT CANCER
     Dosage: 4 MG, 2X/DAY
     Dates: start: 20160408
  21. METHOTREXATE SODIUM. [Suspect]
     Active Substance: METHOTREXATE SODIUM
     Indication: RECURRENT CANCER
  22. METHOTREXATE SODIUM. [Suspect]
     Active Substance: METHOTREXATE SODIUM
     Indication: B PRECURSOR TYPE ACUTE LEUKAEMIA
  23. CYCLOPHOSPHAMIDE. [Suspect]
     Active Substance: CYCLOPHOSPHAMIDE
     Dosage: UNK
     Dates: start: 20160921, end: 20160923
  24. 6-MP [Suspect]
     Active Substance: MERCAPTOPURINE
     Indication: B PRECURSOR TYPE ACUTE LEUKAEMIA
     Dosage: UNK UNK, CYCLIC (14 DAYS EACH THREE WEEKS)
     Dates: end: 20141205
  25. METHOTREXATE SODIUM. [Suspect]
     Active Substance: METHOTREXATE SODIUM
     Indication: METASTASES TO CENTRAL NERVOUS SYSTEM
  26. FLUDARABINE PHOSPHATE. [Suspect]
     Active Substance: FLUDARABINE PHOSPHATE
     Indication: ACUTE LYMPHOCYTIC LEUKAEMIA RECURRENT
     Dosage: UNK
     Dates: start: 20160921, end: 20160923
  27. ARA-C [Suspect]
     Active Substance: CYTARABINE
     Indication: METASTASES TO CENTRAL NERVOUS SYSTEM
     Dosage: 75 MG, UNK
     Route: 037
     Dates: end: 20170622
  28. PEGASPARGASE [Suspect]
     Active Substance: PEGASPARGASE
     Indication: B PRECURSOR TYPE ACUTE LEUKAEMIA
     Dosage: UNK(INTENSIFICATION 2)
  29. AUGMENTIN [Concomitant]
     Active Substance: AMOXICILLIN\CLAVULANATE POTASSIUM
     Dosage: UNK

REACTIONS (19)
  - Dizziness [Recovered/Resolved]
  - Metastases to central nervous system [Unknown]
  - Pyrexia [Recovered/Resolved]
  - Acute lymphocytic leukaemia recurrent [Unknown]
  - Drug eruption [Unknown]
  - Back pain [Recovered/Resolved]
  - Tinnitus [Recovered/Resolved]
  - Cholelithiasis [Recovering/Resolving]
  - Bone marrow failure [Unknown]
  - Paraesthesia [Unknown]
  - Recurrent cancer [Unknown]
  - Recurrent cancer [Unknown]
  - Pyrexia [Unknown]
  - Neoplasm progression [Unknown]
  - Hypoaesthesia [Unknown]
  - Pyrexia [Recovered/Resolved]
  - Febrile neutropenia [Unknown]
  - Headache [Recovered/Resolved]
  - Visual impairment [Unknown]

NARRATIVE: CASE EVENT DATE: 20151203
